FAERS Safety Report 4887507-8 (Version None)
Quarter: 2006Q1

REPORT INFORMATION
  Report Type: 
  Country: None (occurrence: None)
  Receive Date: 20060123
  Receipt Date: 20060112
  Transmission Date: 20060701
  Serious: Yes (Hospitalization)
  Sender: FDA-Public Use
  Company Number: JP-JNJFOC-20051204725

PATIENT
  Sex: Male

DRUGS (2)
  1. ITRIZOLE [Suspect]
     Indication: NAIL TINEA
     Route: 048
     Dates: start: 20050901
  2. METOPROLOL TARTRATE [Concomitant]
     Indication: ARRHYTHMIA
     Route: 048

REACTIONS (1)
  - ERYTHEMA MULTIFORME [None]
